FAERS Safety Report 11206192 (Version 1)
Quarter: 2015Q2

REPORT INFORMATION
  Report Type: Spontaneous
  Country: CA (occurrence: None)
  Receive Date: 20150619
  Receipt Date: 20150619
  Transmission Date: 20150821
  Serious: Yes (Death, Hospitalization)
  Sender: FDA-Public Use
  Company Number: None

PATIENT
  Age: 62 Year
  Sex: Female
  Weight: 72.7 kg

DRUGS (2)
  1. NOLVADEX [Suspect]
     Active Substance: TAMOXIFEN CITRATE
     Dosage: 0 MG
     Dates: end: 20150404
  2. LETROZOLE. [Concomitant]
     Active Substance: LETROZOLE

REACTIONS (7)
  - Coma [None]
  - Dialysis [None]
  - Multi-organ failure [None]
  - Acute kidney injury [None]
  - Septic shock [None]
  - Interstitial lung disease [None]
  - Cerebral infarction [None]

NARRATIVE: CASE EVENT DATE: 20150405
